FAERS Safety Report 10785320 (Version 1)
Quarter: 2015Q1

REPORT INFORMATION
  Report Type: Spontaneous
  Country: US (occurrence: None)
  Receive Date: 20150210
  Receipt Date: 20150210
  Transmission Date: 20150721
  Serious: No
  Sender: FDA-Public Use
  Company Number: None

PATIENT

DRUGS (2)
  1. SYRINGES [Suspect]
     Active Substance: DEVICE
  2. EPINEPHRINE 1:1000 PF INJ 1MG/ML HOME INTENSIVE CARE PHARMACY [Suspect]
     Active Substance: EPINEPHRINE

REACTIONS (1)
  - Product dosage form issue [None]
